FAERS Safety Report 17461777 (Version 1)
Quarter: 2020Q1

REPORT INFORMATION
  Report Type: Spontaneous
  Country: US (occurrence: US)
  Receive Date: 20200213
  Receipt Date: 20200213
  Transmission Date: 20200409
  Serious: Yes (Death)
  Sender: FDA-Public Use
  Company Number: None

PATIENT
  Age: 65 Year
  Sex: Male
  Weight: 76.3 kg

DRUGS (4)
  1. LIDOCAINE (LIDOCAINE HCL 1% INJ) [Suspect]
     Active Substance: LIDOCAINE HYDROCHLORIDE
     Indication: SURGERY
     Route: 058
     Dates: start: 20190730, end: 20190730
  2. LIDOCAINE (LIDOCAINE HCL 1% INJ) [Suspect]
     Active Substance: LIDOCAINE HYDROCHLORIDE
     Indication: SURGERY
  3. CIPROFLOXACIN (CIPROFLOXACIN HCL 500MG TAB) [Suspect]
     Active Substance: CIPROFLOXACIN HYDROCHLORIDE
     Indication: SURGERY
     Route: 048
     Dates: start: 20190729, end: 20190730
  4. CIPROFLOXACIN (CIPROFLOXACIN HCL 500MG TAB) [Suspect]
     Active Substance: CIPROFLOXACIN HYDROCHLORIDE
     Indication: ANTIBIOTIC PROPHYLAXIS

REACTIONS (1)
  - Cardiac arrest [None]

NARRATIVE: CASE EVENT DATE: 20190730
